FAERS Safety Report 25820392 (Version 2)
Quarter: 2025Q3

REPORT INFORMATION
  Report Type: Spontaneous
  Country: US (occurrence: US)
  Receive Date: 20250919
  Receipt Date: 20250929
  Transmission Date: 20251020
  Serious: No
  Sender: LEO PHARM
  Company Number: US-LEO Pharma-382871

PATIENT
  Age: 53 Year
  Sex: Male

DRUGS (1)
  1. ADBRY [Suspect]
     Active Substance: TRALOKINUMAB-LDRM
     Indication: Dermatitis atopic
     Dosage: TREATMENT IS ONGOING, PATIENT WAS USING 2 PENS UNDER THE SKIN ON DAY 1 THEN AT 300 MG EVERY 14 DAYS
     Dates: start: 202509

REACTIONS (2)
  - Visual impairment [Unknown]
  - Vision blurred [Unknown]
